FAERS Safety Report 8248805-3 (Version None)
Quarter: 2012Q2

REPORT INFORMATION
  Report Type: 
  Country: None (occurrence: None)
  Receive Date: 20120401
  Receipt Date: 20120327
  Transmission Date: 20120825
  Serious: Yes (Hospitalization)
  Sender: FDA-Public Use
  Company Number: GB-AMGEN-GBRCT2011045084

PATIENT
  Age: 75 Year
  Sex: Female
  Weight: 78.6 kg

DRUGS (10)
  1. EPIRUBICIN [Concomitant]
     Dosage: 194 MG, Q3WK
     Route: 042
     Dates: start: 20110711
  2. CIPROFLOXACIN [Concomitant]
     Dosage: 250 MG, UNK
     Route: 048
     Dates: start: 20110719
  3. ONDANSETRON [Concomitant]
     Route: 042
     Dates: start: 20110701
  4. DEXAMETHASONE [Concomitant]
     Dosage: UNK
     Dates: start: 20110701
  5. DOMPERIDONE [Concomitant]
     Route: 048
     Dates: start: 20110701
  6. CALCIUM CARBONATE [Concomitant]
     Route: 048
     Dates: start: 20110803
  7. LEVOTHYROXINE SODIUM [Concomitant]
  8. XGEVA [Suspect]
     Indication: BREAST CANCER
     Dosage: 120 MG, Q4WK
     Route: 058
     Dates: start: 20110803
  9. ANTIHYPERTENSIVES [Concomitant]
     Indication: HYPERTENSION
  10. FLUCONAZOLE [Concomitant]
     Dosage: 50 MG, UNK
     Route: 048
     Dates: start: 20110712

REACTIONS (1)
  - DIABETES MELLITUS [None]
